FAERS Safety Report 20125931 (Version 3)
Quarter: 2021Q4

REPORT INFORMATION
  Report Type: Report from Study
  Country: IT (occurrence: IT)
  Receive Date: 20211129
  Receipt Date: 20211215
  Transmission Date: 20220303
  Serious: Yes (Hospitalization)
  Sender: FDA-Public Use
  Company Number: IT-BRISTOL-MYERS SQUIBB COMPANY-BMS-2021-126511

PATIENT
  Age: 80 Year
  Sex: Male
  Weight: 74 kg

DRUGS (16)
  1. BMS-986249 [Suspect]
     Active Substance: BMS-986249
     Indication: Hormone-refractory prostate cancer
     Dosage: 1200 MILLIGRAM
     Route: 065
     Dates: start: 20210902, end: 20210902
  2. NIVOLUMAB [Suspect]
     Active Substance: NIVOLUMAB
     Indication: Hormone-refractory prostate cancer
     Dosage: 480 MILLIGRAM
     Route: 065
     Dates: start: 20210902, end: 20210902
  3. EDOXABAN [Concomitant]
     Active Substance: EDOXABAN
     Indication: Product used for unknown indication
     Route: 048
     Dates: start: 20110101
  4. ATORVASTATIN [Concomitant]
     Active Substance: ATORVASTATIN
     Indication: Product used for unknown indication
     Route: 048
     Dates: start: 20110101
  5. DIGOXIN [Concomitant]
     Active Substance: DIGOXIN
     Indication: Product used for unknown indication
     Route: 048
     Dates: start: 20210415
  6. BROTIZOLAM [Concomitant]
     Active Substance: BROTIZOLAM
     Indication: Product used for unknown indication
     Route: 048
     Dates: start: 20210101
  7. ALLOPURINOL [Concomitant]
     Active Substance: ALLOPURINOL
     Indication: Product used for unknown indication
     Route: 048
     Dates: start: 20210101
  8. LOPERAMIDE HYDROCHLORIDE [Concomitant]
     Active Substance: LOPERAMIDE HYDROCHLORIDE
     Indication: Adverse event
     Dosage: 10 ABSENT
     Route: 048
     Dates: start: 20211029
  9. MYCOSTATIN [Concomitant]
     Active Substance: NYSTATIN
     Indication: Adverse event
     Dosage: 2 ABSENT
     Route: 048
     Dates: start: 20210923
  10. MYCOSTATIN [Concomitant]
     Active Substance: NYSTATIN
     Dosage: 2 ABSENT
     Route: 048
     Dates: start: 20211104
  11. PREDNISONE [Concomitant]
     Active Substance: PREDNISONE
     Indication: Adverse event
     Route: 048
     Dates: start: 20211104
  12. METRONIDAZOLE [Concomitant]
     Active Substance: METRONIDAZOLE
     Indication: Product used for unknown indication
     Route: 048
     Dates: start: 20211109
  13. CETIRIZINE HYDROCHLORIDE [Concomitant]
     Active Substance: CETIRIZINE HYDROCHLORIDE
     Indication: Adverse event
     Route: 048
     Dates: start: 20210923
  14. LANSOPRAZOLE [Concomitant]
     Active Substance: LANSOPRAZOLE
     Indication: Product used for unknown indication
     Route: 048
     Dates: start: 20110101
  15. FUROSEMIDE [Concomitant]
     Active Substance: FUROSEMIDE
     Indication: Product used for unknown indication
     Route: 048
     Dates: start: 20110101
  16. BISOPROLOL FUMARATE [Concomitant]
     Active Substance: BISOPROLOL FUMARATE
     Indication: Product used for unknown indication
     Dosage: 5 MILLIGRAM
     Route: 048
     Dates: start: 20110101

REACTIONS (1)
  - Colitis [Not Recovered/Not Resolved]

NARRATIVE: CASE EVENT DATE: 20211123
